FAERS Safety Report 4404267-5 (Version None)
Quarter: 2004Q3

REPORT INFORMATION
  Report Type: 
  Country: None (occurrence: None)
  Receive Date: 20040719
  Receipt Date: 20040701
  Transmission Date: 20050211
  Serious: Yes (Other)
  Sender: FDA-Public Use
  Company Number: S04-GER-01170-01

PATIENT
  Sex: Male

DRUGS (5)
  1. CIPRALEX (ESCITALOPRAM) [Suspect]
     Indication: DEPRESSION
     Dosage: 10 MG QD PO
     Route: 048
     Dates: start: 20040116, end: 20040206
  2. TETHEXAL (TETRAZEPAM) [Suspect]
     Indication: MUSCLE SPASMS
     Dosage: 50 MG QD PO
     Route: 048
     Dates: start: 20040110, end: 20040120
  3. TETHEXAL (TETRAZEPAM) [Suspect]
     Indication: MUSCLE SPASMS
     Dosage: 150 MG QD
     Dates: start: 20040221, end: 20040206
  4. OMEP 20 (OMEPRAZOLE) [Concomitant]
  5. TEGRETOL [Concomitant]

REACTIONS (3)
  - DERMATITIS ALLERGIC [None]
  - EPIDERMOLYSIS [None]
  - PEMPHIGOID [None]
